FAERS Safety Report 15793773 (Version 2)
Quarter: 2019Q1

REPORT INFORMATION
  Report Type: Spontaneous
  Country: DK (occurrence: DK)
  Receive Date: 20190107
  Receipt Date: 20190108
  Transmission Date: 20190417
  Serious: Yes (Other)
  Sender: FDA-Public Use
  Company Number: DK-JNJFOC-20190105155

PATIENT
  Age: 19 Year
  Sex: Female

DRUGS (3)
  1. STELARA [Suspect]
     Active Substance: USTEKINUMAB
     Indication: IMMUNOSUPPRESSANT DRUG THERAPY
     Route: 058
     Dates: start: 20141128
  2. STELARA [Suspect]
     Active Substance: USTEKINUMAB
     Indication: IMMUNOSUPPRESSANT DRUG THERAPY
     Route: 058
     Dates: start: 20171220
  3. METHOTREXATE. [Concomitant]
     Active Substance: METHOTREXATE
     Indication: PSORIASIS
     Route: 065
     Dates: start: 20180424, end: 20181002

REACTIONS (4)
  - Off label use [Unknown]
  - Headache [Not Recovered/Not Resolved]
  - Product use in unapproved indication [Unknown]
  - Intracranial pressure increased [Not Recovered/Not Resolved]

NARRATIVE: CASE EVENT DATE: 20141128
